FAERS Safety Report 12954956 (Version 1)
Quarter: 2016Q4

REPORT INFORMATION
  Report Type: Other
  Country: GB (occurrence: GB)
  Receive Date: 20161118
  Receipt Date: 20161118
  Transmission Date: 20170207
  Serious: Yes (Hospitalization, Other)
  Sender: FDA-Public Use
  Company Number: GB-LUPIN PHARMACEUTICALS INC.-E2B_00006560

PATIENT
  Age: 86 Year
  Sex: Female
  Weight: 63.5 kg

DRUGS (2)
  1. MEMANTINE. [Suspect]
     Active Substance: MEMANTINE
     Indication: AMNESIA
     Route: 065
  2. WARFARIN [Concomitant]
     Active Substance: WARFARIN
     Indication: PRODUCT USED FOR UNKNOWN INDICATION
     Route: 065

REACTIONS (3)
  - International normalised ratio increased [Recovered/Resolved]
  - Malaise [Unknown]
  - Dizziness [Unknown]
